FAERS Safety Report 4362013-8 (Version None)
Quarter: 2004Q2

REPORT INFORMATION
  Report Type: 
  Country: None (occurrence: None)
  Receive Date: 20040521
  Receipt Date: 20040217
  Transmission Date: 20050107
  Serious: No
  Sender: FDA-Public Use
  Company Number: US-GLAXOSMITHKLINE-A0498516A

PATIENT
  Age: 14 Year
  Sex: Male

DRUGS (2)
  1. WELLBUTRIN XL [Suspect]
     Dosage: 300MG PER DAY
     Route: 048
  2. NONE [Concomitant]

REACTIONS (5)
  - ANTISOCIAL PERSONALITY DISORDER [None]
  - CRYING [None]
  - DEPRESSED MOOD [None]
  - DISSOCIATION [None]
  - PALLOR [None]
